FAERS Safety Report 25077461 (Version 1)
Quarter: 2025Q1

REPORT INFORMATION
  Report Type: Report from Study
  Country: DE (occurrence: DE)
  Receive Date: 20250314
  Receipt Date: 20250314
  Transmission Date: 20250408
  Serious: Yes (Hospitalization, Other)
  Sender: JOHNSON AND JOHNSON
  Company Number: DE-JNJFOC-20250310477

PATIENT

DRUGS (2)
  1. ZYTIGA [Suspect]
     Active Substance: ABIRATERONE ACETATE
     Indication: Hormone-refractory prostate cancer
     Route: 048
  2. ENZALUTAMIDE [Suspect]
     Active Substance: ENZALUTAMIDE
     Indication: Hormone-refractory prostate cancer
     Route: 065

REACTIONS (14)
  - Myocardial ischaemia [Unknown]
  - Deep vein thrombosis [Unknown]
  - Cardiac arrest [Unknown]
  - Cardiac failure [Unknown]
  - Arrhythmia [Unknown]
  - Hypertension [Unknown]
  - Cardiac valve disease [Unknown]
  - Atrioventricular block [Unknown]
  - Cerebrovascular disorder [Unknown]
  - Peripheral vascular disorder [Unknown]
  - Lung disorder [Unknown]
  - Hypokalaemia [Unknown]
  - Fall [Unknown]
  - Fracture [Unknown]
